FAERS Safety Report 9747528 (Version 3)
Quarter: 2014Q1

REPORT INFORMATION
  Report Type: Spontaneous
  Country: US (occurrence: US)
  Receive Date: 20131212
  Receipt Date: 20140108
  Transmission Date: 20141002
  Serious: Yes (Other)
  Sender: FDA-Public Use
  Company Number: US-JNJFOC-20131114934

PATIENT
  Age: 46 Year
  Sex: Female

DRUGS (2)
  1. NICOTROL INHALER [Suspect]
     Route: 055
  2. NICOTROL INHALER [Suspect]
     Indication: PRODUCT USED FOR UNKNOWN INDICATION
     Dosage: IMPREGNATED PAD, 6-16 CARTRIDGES DAILY
     Route: 055

REACTIONS (4)
  - Pneumonia [Unknown]
  - Depression [Unknown]
  - Bronchitis [Unknown]
  - Pleurisy [Unknown]
